FAERS Safety Report 7742573 (Version 3)
Quarter: 2013Q3

REPORT INFORMATION
  Report Type: Spontaneous
  Country: US (occurrence: US)
  Receive Date: 20101229
  Receipt Date: 20130730
  Transmission Date: 20140515
  Serious: Yes (Hospitalization)
  Sender: FDA-Public Use
  Company Number: US-BAYER-2010-006675

PATIENT
  Age: 23 Year
  Sex: Female

DRUGS (15)
  1. YAZ [Suspect]
     Indication: PROPHYLAXIS
     Route: 048
  2. YASMIN [Suspect]
     Indication: PROPHYLAXIS
     Route: 048
  3. OCELLA [Suspect]
     Indication: PROPHYLAXIS
     Route: 048
  4. LEVOTHYROXINE [Concomitant]
  5. LITHIUM [Concomitant]
  6. TEGRETOL [Concomitant]
  7. LAMICTAL [Concomitant]
  8. OMEPRAZOLE [Concomitant]
  9. CYTOMEL [Concomitant]
  10. SYNTHROID [Concomitant]
  11. SEROQUEL [Concomitant]
  12. DILAUDID [Concomitant]
  13. VICODIN [Concomitant]
  14. PRILOSEC [Concomitant]
  15. IMITREX [Concomitant]

REACTIONS (3)
  - Injury [None]
  - Pain [None]
  - Pulmonary embolism [None]
